FAERS Safety Report 9516568 (Version 2)
Quarter: 2014Q1

REPORT INFORMATION
  Report Type: Spontaneous
  Country: US (occurrence: None)
  Receive Date: 20130305
  Receipt Date: 20140306
  Transmission Date: 20141002
  Serious: Yes (Other)
  Sender: FDA-Public Use
  Company Number: 163-21880-12120342

PATIENT
  Age: 77 Year
  Sex: Male
  Weight: 92.99 kg

DRUGS (11)
  1. REVLIMID ( LENALIDOMIDE) ( 10 MILLIGRAM, CAPSULES) [Suspect]
     Indication: MYELODYSPLASTIC SYNDROME
     Dosage: 10 MG, 21 IN 21 D, PO
     Route: 048
     Dates: start: 201209
  2. METFORMIN HCL (METFORMIN HYDROCHLORIDE) [Concomitant]
  3. METOPROLOL SUCCINATE (METOPROLOL SUCCINATE) [Concomitant]
  4. MULTIVITAMINS (MULTIVITAMINS) (CAPSULES) [Concomitant]
  5. NOVOLOG (INSULIN ASPART) [Concomitant]
  6. SIMVASTATIN [Suspect]
  7. VITAMIN C (ASCORBIC ACID) (TABLETS) [Concomitant]
  8. VITAMIN D (ERGOCALCIFEROL) (CAPSULES) [Concomitant]
  9. GLYBURIDE (GLIBENCLAMIDE) (CAPSULES) [Concomitant]
  10. ASPIRIN (CAPSULES) [Concomitant]
  11. GLUCOPHAGE (CAPSULES) [Concomitant]

REACTIONS (4)
  - Haemoglobin decreased [None]
  - Platelet count decreased [None]
  - Myelodysplastic syndrome transformation [None]
  - Leukaemia [None]
